FAERS Safety Report 6068483-1 (Version None)
Quarter: 2009Q1

REPORT INFORMATION
  Report Type: 
  Country: None (occurrence: None)
  Receive Date: 20090206
  Receipt Date: 20090130
  Transmission Date: 20090719
  Serious: Yes (Other)
  Sender: FDA-Public Use
  Company Number: GB-PFIZER INC-2008158155

PATIENT

DRUGS (1)
  1. CHAMPIX [Suspect]
     Route: 048

REACTIONS (3)
  - AGITATION [None]
  - PARANOIA [None]
  - RESTLESSNESS [None]
